FAERS Safety Report 7993301-1 (Version None)
Quarter: 2011Q4

REPORT INFORMATION
  Report Type: 
  Country: None (occurrence: None)
  Receive Date: 20111219
  Receipt Date: 20110720
  Transmission Date: 20120403
  Serious: No
  Sender: FDA-Public Use
  Company Number: US-ASTRAZENECA-2011SE43971

PATIENT
  Age: 80 Year
  Sex: Female

DRUGS (11)
  1. CRESTOR [Suspect]
     Route: 048
     Dates: start: 20100108
  2. ALENDRONATE SODIUM [Concomitant]
  3. TRAMADOL HCL [Concomitant]
  4. LISINOPRIL [Concomitant]
  5. PREMARIN [Concomitant]
  6. OXYCODONE/ACETAMINOPHEN [Concomitant]
  7. SYNTHROID [Concomitant]
  8. CARISOPRODOL [Concomitant]
  9. GLIMEPIRIDE [Concomitant]
  10. CYCLOBENZAPRINE [Concomitant]
  11. AZITHROMYCIN [Concomitant]

REACTIONS (1)
  - PAIN [None]
